FAERS Safety Report 24951210 (Version 2)
Quarter: 2025Q3

REPORT INFORMATION
  Report Type: Spontaneous
  Country: US (occurrence: US)
  Receive Date: 20250210
  Receipt Date: 20250803
  Transmission Date: 20251021
  Serious: Yes (Other)
  Sender: ALEXION PHARMACEUTICALS
  Company Number: US-AstraZeneca-CH-00798960AP

PATIENT
  Age: 73 Year
  Sex: Female

DRUGS (1)
  1. BREZTRI [Suspect]
     Active Substance: BUDESONIDE\FORMOTEROL\GLYCOPYRROLATE
     Route: 065

REACTIONS (9)
  - Dependence on oxygen therapy [Unknown]
  - Device delivery system issue [Unknown]
  - Product dose omission issue [Unknown]
  - Lung disorder [Unknown]
  - Feeling abnormal [Unknown]
  - Wrong technique in product usage process [Unknown]
  - Product taste abnormal [Unknown]
  - Nervousness [Unknown]
  - Device use issue [Unknown]

NARRATIVE: CASE EVENT DATE: 20250202
